FAERS Safety Report 16394827 (Version 1)
Quarter: 2019Q3

REPORT INFORMATION
  Report Type: Spontaneous
  Country: US (occurrence: US)
  Receive Date: 20190604
  Receipt Date: 20190604
  Transmission Date: 20191004
  Serious: Yes (Hospitalization)
  Sender: FDA-Public Use
  Company Number: None

PATIENT
  Age: 66 Year
  Sex: Male
  Weight: 96.75 kg

DRUGS (11)
  1. BABY ASPRIN [Concomitant]
     Active Substance: ASPIRIN
  2. SIMVASTATIN. [Concomitant]
     Active Substance: SIMVASTATIN
  3. FRUIT AND VEGETABLE BLEND [Concomitant]
  4. LISINOPRIL. [Concomitant]
     Active Substance: LISINOPRIL
  5. OLIVE OIL [Concomitant]
     Active Substance: OLIVE OIL
  6. CALCIUM [Concomitant]
     Active Substance: CALCIUM
  7. OPDIVO [Suspect]
     Active Substance: NIVOLUMAB
     Indication: MALIGNANT MELANOMA STAGE III
     Dosage: ?          QUANTITY:1 INJECTION(S);OTHER FREQUENCY:ONCE A MONTH;?
     Route: 042
  8. FLOVENT [Concomitant]
     Active Substance: FLUTICASONE PROPIONATE
  9. CLONAZEPAM. [Concomitant]
     Active Substance: CLONAZEPAM
  10. NEXIUM [Concomitant]
     Active Substance: ESOMEPRAZOLE MAGNESIUM
  11. ZYRTEC [Concomitant]
     Active Substance: CETIRIZINE HYDROCHLORIDE

REACTIONS (7)
  - Weight decreased [None]
  - Dyskinesia [None]
  - Head titubation [None]
  - Lethargy [None]
  - Seizure [None]
  - Nausea [None]
  - Gait disturbance [None]

NARRATIVE: CASE EVENT DATE: 20190216
